FAERS Safety Report 24025450 (Version 1)
Quarter: 2024Q2

REPORT INFORMATION
  Report Type: Report from Study
  Country: CN (occurrence: CN)
  Receive Date: 20240628
  Receipt Date: 20240628
  Transmission Date: 20240716
  Serious: No
  Sender: FDA-Public Use
  Company Number: CN-ROCHE-3290194

PATIENT
  Age: 36 Year
  Sex: Female
  Weight: 60.0 kg

DRUGS (1)
  1. ALECENSA [Suspect]
     Active Substance: ALECTINIB HYDROCHLORIDE
     Indication: Lung neoplasm malignant
     Dosage: 224 CAPSULES
     Route: 048
     Dates: start: 20210710

REACTIONS (6)
  - Blood bilirubin increased [Not Recovered/Not Resolved]
  - Weight increased [Not Recovered/Not Resolved]
  - Tanning [Recovering/Resolving]
  - Solar dermatitis [Not Recovered/Not Resolved]
  - Oedema peripheral [Recovering/Resolving]
  - Anaemia [Not Recovered/Not Resolved]

NARRATIVE: CASE EVENT DATE: 20210901
